FAERS Safety Report 4916725-5 (Version None)
Quarter: 2006Q1

REPORT INFORMATION
  Report Type: 
  Country: None (occurrence: None)
  Receive Date: 20060214
  Receipt Date: 20060127
  Transmission Date: 20060701
  Serious: Yes (Other)
  Sender: FDA-Public Use
  Company Number: CA200601005129

PATIENT
  Age: 40 Year
  Sex: Male

DRUGS (2)
  1. STRATTERA [Suspect]
     Dosage: 40 MG
  2. CONCERTA [Concomitant]

REACTIONS (1)
  - SUICIDAL IDEATION [None]
